FAERS Safety Report 7931700-4 (Version None)
Quarter: 2011Q4

REPORT INFORMATION
  Report Type: 
  Country: None (occurrence: None)
  Receive Date: 20111121
  Receipt Date: 20111111
  Transmission Date: 20120403
  Serious: Yes (Other)
  Sender: FDA-Public Use
  Company Number: PHHY2011US100760

PATIENT
  Age: 13 Year
  Sex: Male

DRUGS (6)
  1. BUSULFAN [Concomitant]
     Indication: STEM CELL TRANSPLANT
     Dosage: 0.8 TO 1 MG/KG ON DAYS 9 TO 6 BEFORE TRANSPLANTATION EVERY 6 HOURS FOR 16 DOSES
     Route: 042
  2. FLUDARABINE PHOSPHATE [Concomitant]
     Indication: STEM CELL TRANSPLANT
     Dosage: 30 MG/M2 AT DAYS 5 TO 2
  3. METHOTREXATE [Concomitant]
     Indication: STEM CELL TRANSPLANT
  4. CYCLOSPORINE [Suspect]
     Indication: STEM CELL TRANSPLANT
  5. CYCLOPHOSPHAMIDE [Concomitant]
     Indication: STEM CELL TRANSPLANT
     Dosage: 50 MG/KG AT DAYS 5 AND 2
  6. ALEMTUZUMAB [Concomitant]
     Indication: STEM CELL TRANSPLANT

REACTIONS (2)
  - LUNG NEOPLASM [None]
  - AUTOIMMUNE THYROIDITIS [None]
